FAERS Safety Report 7214673-1 (Version None)
Quarter: 2011Q1

REPORT INFORMATION
  Report Type: 
  Country: None (occurrence: None)
  Receive Date: 20110107
  Receipt Date: 20110103
  Transmission Date: 20110831
  Serious: Yes (Hospitalization, Other)
  Sender: FDA-Public Use
  Company Number: US-JNJFOC-20100907047

PATIENT
  Sex: Male

DRUGS (4)
  1. LEVAQUIN [Suspect]
     Indication: SINUSITIS
     Route: 048
  2. LEVAQUIN [Suspect]
     Indication: RESPIRATORY TRACT INFECTION
     Route: 048
  3. LEVAQUIN [Suspect]
     Route: 048
  4. LEVAQUIN [Suspect]
     Route: 048

REACTIONS (8)
  - TENOSYNOVITIS [None]
  - JOINT SPRAIN [None]
  - PLANTAR FASCIITIS [None]
  - LIGAMENT DISORDER [None]
  - LIGAMENTITIS [None]
  - TENDON RUPTURE [None]
  - TENDONITIS [None]
  - PERIARTHRITIS [None]
